FAERS Safety Report 9320310 (Version 2)
Quarter: 2013Q3

REPORT INFORMATION
  Report Type: Spontaneous
  Country: DE (occurrence: DE)
  Receive Date: 20130530
  Receipt Date: 20130705
  Transmission Date: 20140515
  Serious: Yes (Other)
  Sender: FDA-Public Use
  Company Number: DE-B.I. PHARMACEUTICALS,INC./RIDGEFIELD-2013-DE-01420DE

PATIENT
  Age: 70 Year
  Sex: Male
  Weight: 86 kg

DRUGS (5)
  1. PRADAXA [Suspect]
     Indication: ATRIAL FIBRILLATION
     Dosage: 300 MG
     Dates: start: 201202
  2. PRADAXA [Suspect]
     Dosage: 300 NR
     Dates: start: 2011, end: 2012
  3. BISO [Concomitant]
     Dosage: 5 NR
  4. LOSARTAN [Concomitant]
     Dosage: 25 NR
  5. SIMVA [Concomitant]
     Dosage: 40 NR

REACTIONS (4)
  - Eosinophilic pneumonia [Not Recovered/Not Resolved]
  - Interstitial lung disease [Not Recovered/Not Resolved]
  - Fibrosis [Not Recovered/Not Resolved]
  - Dyspnoea [Not Recovered/Not Resolved]
